FAERS Safety Report 8366959-5 (Version None)
Quarter: 2012Q2

REPORT INFORMATION
  Report Type: 
  Country: None (occurrence: None)
  Receive Date: 20120517
  Receipt Date: 20120511
  Transmission Date: 20120825
  Serious: Yes (Hospitalization)
  Sender: FDA-Public Use
  Company Number: PHHY2012MX038439

PATIENT
  Sex: Female

DRUGS (2)
  1. DIOVAN [Suspect]
     Indication: HYPERTENSION
     Dosage: 160 MG, DAILY
     Dates: start: 20091101
  2. INSULIN [Concomitant]
     Dosage: 18 U, DAILY

REACTIONS (2)
  - PNEUMONIA [None]
  - MALAISE [None]
